FAERS Safety Report 25814265 (Version 1)
Quarter: 2025Q3

REPORT INFORMATION
  Report Type: Spontaneous
  Country: EU (occurrence: EU)
  Receive Date: 20250917
  Receipt Date: 20250917
  Transmission Date: 20251020
  Serious: Yes (Other)
  Sender: MYLAN
  Company Number: EU-EVENT-004153

PATIENT
  Age: 78 Year
  Sex: Male

DRUGS (12)
  1. LENALIDOMIDE [Suspect]
     Active Substance: LENALIDOMIDE
     Indication: Diffuse large B-cell lymphoma
  2. LENALIDOMIDE [Suspect]
     Active Substance: LENALIDOMIDE
     Route: 065
  3. LENALIDOMIDE [Suspect]
     Active Substance: LENALIDOMIDE
     Route: 065
  4. LENALIDOMIDE [Suspect]
     Active Substance: LENALIDOMIDE
  5. TAFASITAMAB [Suspect]
     Active Substance: TAFASITAMAB
     Indication: Diffuse large B-cell lymphoma
  6. TAFASITAMAB [Suspect]
     Active Substance: TAFASITAMAB
  7. TAFASITAMAB [Suspect]
     Active Substance: TAFASITAMAB
     Route: 065
  8. TAFASITAMAB [Suspect]
     Active Substance: TAFASITAMAB
     Route: 065
  9. TAFASITAMAB [Suspect]
     Active Substance: TAFASITAMAB
  10. TAFASITAMAB [Suspect]
     Active Substance: TAFASITAMAB
  11. TAFASITAMAB [Suspect]
     Active Substance: TAFASITAMAB
     Route: 065
  12. TAFASITAMAB [Suspect]
     Active Substance: TAFASITAMAB
     Route: 065

REACTIONS (4)
  - Squamous cell carcinoma of skin [Unknown]
  - Prostate cancer [Unknown]
  - Leukopenia [Unknown]
  - Anaemia [Unknown]

NARRATIVE: CASE EVENT DATE: 20240501
